FAERS Safety Report 24350650 (Version 1)
Quarter: 2024Q3

REPORT INFORMATION
  Report Type: Spontaneous
  Country: US (occurrence: None)
  Receive Date: 20240920
  Receipt Date: 20240920
  Transmission Date: 20241017
  Serious: No
  Sender: Public
  Company Number: None

PATIENT
  Age: 48 Year
  Sex: Male

DRUGS (1)
  1. LENALIDOMIDE [Suspect]
     Active Substance: LENALIDOMIDE
     Indication: Plasma cell myeloma
     Dosage: 15MG QD ORAL
     Route: 048
     Dates: start: 20180413

REACTIONS (1)
  - Deep vein thrombosis [None]

NARRATIVE: CASE EVENT DATE: 20240913
